FAERS Safety Report 12594555 (Version 2)
Quarter: 2016Q3

REPORT INFORMATION
  Report Type: Spontaneous
  Country: TR (occurrence: TR)
  Receive Date: 20160726
  Receipt Date: 20160728
  Transmission Date: 20161109
  Serious: Yes (Life-Threatening)
  Sender: FDA-Public Use
  Company Number: TR-WATSON-2016-12739

PATIENT
  Age: 26 Year
  Sex: Male
  Weight: 85 kg

DRUGS (5)
  1. ASIST [Concomitant]
     Indication: PRODUCTIVE COUGH
     Dosage: 2 DF, QID
     Route: 042
     Dates: start: 20160420
  2. KEPPRA [Suspect]
     Active Substance: LEVETIRACETAM
     Indication: SEIZURE
     Dosage: 1 G, BID
     Route: 042
     Dates: start: 20160427, end: 20160515
  3. TAZOJECT [Concomitant]
     Indication: INFECTION
     Dosage: 1.5 G, QID
     Route: 042
     Dates: start: 20160511
  4. RIXPER [Suspect]
     Active Substance: RISPERIDONE
     Indication: DELIRIUM
     Dosage: 1 G, DAILY
     Route: 048
     Dates: start: 20160421, end: 20160515
  5. NEVOFAM [Concomitant]
     Indication: PROPHYLAXIS
     Dosage: 1 DF, BID
     Route: 042
     Dates: start: 20160420

REACTIONS (2)
  - Generalised erythema [Recovering/Resolving]
  - Hypersensitivity [Recovered/Resolved]

NARRATIVE: CASE EVENT DATE: 20160515
